FAERS Safety Report 9241924 (Version 1)
Quarter: 2013Q2

REPORT INFORMATION
  Report Type: Spontaneous
  Country: US (occurrence: US)
  Receive Date: 20130419
  Receipt Date: 20130419
  Transmission Date: 20140414
  Serious: Yes (Other)
  Sender: FDA-Public Use
  Company Number: US-ELI_LILLY_AND_COMPANY-US201304000644

PATIENT
  Sex: Female

DRUGS (4)
  1. FORTEO [Suspect]
     Indication: OSTEOPOROSIS
     Dosage: 20 UG, QD
     Route: 065
  2. FORTEO [Suspect]
     Dosage: 20 UG, QD
     Route: 065
  3. BABY ASPIRIN [Concomitant]
     Dosage: UNK
  4. CRESTOR [Concomitant]
     Dosage: UNK

REACTIONS (11)
  - Bone cancer [Unknown]
  - Bone pain [Not Recovered/Not Resolved]
  - Anxiety [Not Recovered/Not Resolved]
  - Dysphonia [Not Recovered/Not Resolved]
  - Injection site haemorrhage [Unknown]
  - Injection site bruising [Unknown]
  - Muscle spasms [Not Recovered/Not Resolved]
  - Drug dose omission [Unknown]
  - Incorrect storage of drug [Unknown]
  - Contusion [Unknown]
  - Throat irritation [Unknown]
